FAERS Safety Report 5463385-3 (Version None)
Quarter: 2007Q3

REPORT INFORMATION
  Report Type: 
  Country: None (occurrence: None)
  Receive Date: 20070920
  Receipt Date: 20070911
  Transmission Date: 20080115
  Serious: Yes (Life-Threatening, Hospitalization)
  Sender: FDA-Public Use
  Company Number: JP-ASTRAZENECA-2007SE04350

PATIENT
  Age: 72 Year
  Sex: Male
  Weight: 67 kg

DRUGS (17)
  1. CANDESARTAN CILEXETIL [Suspect]
     Indication: CARDIAC FAILURE CHRONIC
     Route: 048
     Dates: start: 20070615
  2. ZOLPIDEM [Suspect]
     Indication: INSOMNIA
     Route: 048
     Dates: start: 20060313
  3. DIART [Concomitant]
     Indication: CARDIAC FAILURE CHRONIC
     Route: 048
     Dates: start: 20060221
  4. ARTIST [Concomitant]
     Indication: CARDIAC FAILURE CHRONIC
     Route: 048
     Dates: start: 20060221
  5. ASPIRIN [Concomitant]
     Indication: ANGINA PECTORIS
     Route: 048
  6. ZYROLIC [Concomitant]
     Indication: HYPERURICAEMIA
     Route: 048
     Dates: start: 20070122
  7. CALBLOCK [Concomitant]
     Indication: HYPERTENSION
     Route: 048
     Dates: start: 20061218
  8. ANPLAG [Concomitant]
     Indication: ARTERIOSCLEROSIS OBLITERANS
     Route: 048
     Dates: start: 20040601
  9. KINEDAK [Concomitant]
     Indication: DIABETIC NEUROPATHY
     Route: 048
     Dates: start: 20040422
  10. GASMOTIN [Concomitant]
     Indication: GASTRITIS
     Route: 048
     Dates: start: 20050530
  11. MAGLAX [Concomitant]
     Indication: CONSTIPATION
     Route: 048
     Dates: start: 20050502
  12. LIVALO [Concomitant]
     Indication: HYPERLIPIDAEMIA
     Route: 048
     Dates: start: 20040601
  13. GASPORT D [Concomitant]
     Indication: GASTRITIS
     Route: 048
     Dates: start: 20040202
  14. LAXOBERON [Concomitant]
     Indication: CONSTIPATION
     Route: 048
  15. NITROL [Concomitant]
     Indication: ANGINA PECTORIS
     Route: 048
  16. FORSENID [Concomitant]
     Indication: CONSTIPATION
     Route: 048
  17. NOVOLIN N [Concomitant]
     Indication: DIABETES MELLITUS
     Route: 042

REACTIONS (1)
  - SUICIDE ATTEMPT [None]
